FAERS Safety Report 10181959 (Version 3)
Quarter: 2014Q2

REPORT INFORMATION
  Report Type: Spontaneous
  Country: TR (occurrence: TR)
  Receive Date: 20140519
  Receipt Date: 20140606
  Transmission Date: 20141212
  Serious: Yes (Hospitalization, Other)
  Sender: FDA-Public Use
  Company Number: TR-009507513-1405TUR009307

PATIENT
  Age: 29 Year
  Sex: Female

DRUGS (2)
  1. MONTELUKAST SODIUM [Suspect]
     Indication: ASTHMA
     Dosage: 10MG/DL
     Route: 048
  2. MONTELUKAST SODIUM [Suspect]
     Dosage: UNK
     Route: 048
     Dates: start: 2010, end: 2011

REACTIONS (2)
  - Allergic granulomatous angiitis [Recovered/Resolved]
  - Allergic granulomatous angiitis [Recovered/Resolved]
